FAERS Safety Report 26196254 (Version 1)
Quarter: 2025Q4

REPORT INFORMATION
  Report Type: Spontaneous
  Country: US (occurrence: US)
  Receive Date: 20251224
  Receipt Date: 20251224
  Transmission Date: 20260117
  Serious: No
  Sender: NOVARTIS
  Company Number: US-002147023-NVSC2025US196031

PATIENT
  Sex: Male

DRUGS (1)
  1. VANRAFIA [Suspect]
     Active Substance: ATRASENTAN HYDROCHLORIDE
     Indication: IgA nephropathy
     Dosage: 1 MG, QD (.75)
     Route: 048

REACTIONS (1)
  - Rash [Unknown]
